FAERS Safety Report 11840149 (Version 1)
Quarter: 2015Q4

REPORT INFORMATION
  Report Type: Spontaneous
  Country: US (occurrence: None)
  Receive Date: 20151215
  Receipt Date: 20151215
  Transmission Date: 20160305
  Serious: Yes (Hospitalization, Disabling, Other)
  Sender: FDA-Public Use
  Company Number: None

PATIENT
  Age: 45 Year
  Sex: Female
  Weight: 85.73 kg

DRUGS (10)
  1. METRONDAZOLE [Concomitant]
  2. NORTRIPTYLINE [Concomitant]
     Active Substance: NORTRIPTYLINE
  3. FISH OIL [Concomitant]
     Active Substance: FISH OIL
  4. LOSARTAN. [Concomitant]
     Active Substance: LOSARTAN
  5. CIPROFLOXACIN. [Concomitant]
     Active Substance: CIPROFLOXACIN
  6. POTASSIUM [Concomitant]
     Active Substance: POTASSIUM
  7. MIRENA [Suspect]
     Active Substance: LEVONORGESTREL
  8. AMLODIPINE [Concomitant]
     Active Substance: AMLODIPINE BESYLATE
  9. ASPIRIN. [Concomitant]
     Active Substance: ASPIRIN
  10. PRENATAL VITAMINS [Concomitant]
     Active Substance: VITAMINS

REACTIONS (12)
  - Insomnia [None]
  - Headache [None]
  - Mood swings [None]
  - Menorrhagia [None]
  - Visual impairment [None]
  - Malaise [None]
  - Hypertension [None]
  - Diverticulitis [None]
  - Muscle spasms [None]
  - Anxiety [None]
  - Alopecia [None]
  - Haemorrhage [None]

NARRATIVE: CASE EVENT DATE: 20120315
